FAERS Safety Report 21101269 (Version 8)
Quarter: 2023Q1

REPORT INFORMATION
  Report Type: Report from Study
  Country: US (occurrence: US)
  Receive Date: 20220719
  Receipt Date: 20230131
  Transmission Date: 20230417
  Serious: Yes (Other)
  Sender: FDA-Public Use
  Company Number: US-NOVARTISPH-NVSC2022US161907

PATIENT
  Sex: Female

DRUGS (3)
  1. KESIMPTA [Suspect]
     Active Substance: OFATUMUMAB
     Indication: Relapsing multiple sclerosis
     Dosage: UNK, QW
     Route: 058
     Dates: start: 20220629
  2. KESIMPTA [Suspect]
     Active Substance: OFATUMUMAB
     Indication: Multiple sclerosis
     Dosage: 20 MG, QMO
     Route: 058
     Dates: start: 20230111
  3. COPAXONE [Concomitant]
     Active Substance: GLATIRAMER ACETATE
     Indication: Product used for unknown indication
     Dosage: UNK
     Route: 065
     Dates: start: 1997

REACTIONS (13)
  - Neuropathy peripheral [Unknown]
  - Multiple sclerosis relapse [Unknown]
  - Muscular weakness [Unknown]
  - Coordination abnormal [Unknown]
  - Fall [Unknown]
  - Asthenia [Unknown]
  - Gait disturbance [Unknown]
  - Rhinorrhoea [Unknown]
  - Hypersensitivity [Unknown]
  - Nausea [Unknown]
  - Anxiety [Unknown]
  - General physical condition abnormal [Recovering/Resolving]
  - Drug effect less than expected [Recovered/Resolved with Sequelae]
